FAERS Safety Report 22181885 (Version 1)
Quarter: 2023Q2

REPORT INFORMATION
  Report Type: Report from Study
  Country: None (occurrence: PL)
  Receive Date: 20230406
  Receipt Date: 20230406
  Transmission Date: 20230722
  Serious: No
  Sender: FDA-Public Use
  Company Number: PL-Air Products and Chemicals, Inc. -2139992

PATIENT
  Age: 37 Year
  Sex: Female

DRUGS (1)
  1. OXYGEN [Suspect]
     Active Substance: OXYGEN
     Route: 064

REACTIONS (2)
  - Foetal exposure during pregnancy [None]
  - Premature baby [None]
